FAERS Safety Report 4939417-5 (Version None)
Quarter: 2006Q1

REPORT INFORMATION
  Report Type: 
  Country: None (occurrence: None)
  Receive Date: 20060307
  Receipt Date: 20060222
  Transmission Date: 20060701
  Serious: Yes (Other)
  Sender: FDA-Public Use
  Company Number: B0413890A

PATIENT
  Age: 22 Year
  Sex: Male

DRUGS (3)
  1. LITHIUM CARBONATE [Suspect]
     Indication: SCHIZOAFFECTIVE DISORDER
  2. ZIPRASIDONE HCL INJECTION (ZIPRASIDONE HCL) [Suspect]
     Dosage: INTRAMUSCULAR
     Route: 030
  3. NEUROLEPTIC [Concomitant]

REACTIONS (12)
  - AGGRESSION [None]
  - BLOOD SODIUM INCREASED [None]
  - DIARRHOEA [None]
  - DRUG INTERACTION [None]
  - ELEVATED MOOD [None]
  - INSOMNIA [None]
  - IRRITABILITY [None]
  - NEUROLOGICAL SYMPTOM [None]
  - PSYCHOMOTOR HYPERACTIVITY [None]
  - PSYCHOTIC DISORDER [None]
  - SOMNOLENCE [None]
  - THERAPEUTIC AGENT TOXICITY [None]
